FAERS Safety Report 12654566 (Version 7)
Quarter: 2016Q4

REPORT INFORMATION
  Report Type: Spontaneous
  Country: US (occurrence: US)
  Receive Date: 20160816
  Receipt Date: 20161213
  Transmission Date: 20170207
  Serious: Yes (Hospitalization, Congenital Anomaly, Other)
  Sender: FDA-Public Use
  Company Number: PHHY2015US133640

PATIENT
  Sex: Female

DRUGS (2)
  1. ONDANSETRON HYDROCHLORIDE. [Suspect]
     Active Substance: ONDANSETRON HYDROCHLORIDE
     Indication: FOETAL EXPOSURE DURING PREGNANCY
     Dosage: MOTHER DOSE: 4 MG, QD
     Route: 064
  2. ZOFRAN [Suspect]
     Active Substance: ONDANSETRON HYDROCHLORIDE
     Indication: FOETAL EXPOSURE DURING PREGNANCY
     Dosage: MOTHERS DOSE: 4 TO 8 MG, EVERY 6 HRS
     Route: 064

REACTIONS (33)
  - Heart disease congenital [Unknown]
  - Atrial septal defect [Unknown]
  - Left-to-right cardiac shunt [Unknown]
  - Fallot^s tetralogy [Unknown]
  - Hypokalaemia [Unknown]
  - Ventricular tachycardia [Unknown]
  - Right ventricular hypertrophy [Unknown]
  - Congenital pulmonary valve atresia [Unknown]
  - Congenital heart valve disorder [Unknown]
  - Enteritis infectious [Unknown]
  - Cardiac murmur [Unknown]
  - Night sweats [Unknown]
  - Ebstein^s anomaly [Unknown]
  - Ventricular extrasystoles [Unknown]
  - Right ventricular enlargement [Unknown]
  - Nervousness [Unknown]
  - Patent ductus arteriosus [Unknown]
  - Congenital tricuspid valve atresia [Unknown]
  - Ventricular septal defect [Unknown]
  - Vulvovaginal discomfort [Unknown]
  - Eating disorder [Unknown]
  - Anxiety [Unknown]
  - Chest pain [Unknown]
  - Foetal exposure during pregnancy [Unknown]
  - Injury [Unknown]
  - Pulmonary artery stenosis congenital [Unknown]
  - Tricuspid valve incompetence [Unknown]
  - Right ventricle outflow tract obstruction [Unknown]
  - Congenital anomaly [Unknown]
  - Gastrooesophageal reflux disease [Unknown]
  - Cardiomegaly [Unknown]
  - Pulmonary valve incompetence [Unknown]
  - Fatigue [Unknown]
